FAERS Safety Report 8205965-8 (Version None)
Quarter: 2012Q1

REPORT INFORMATION
  Report Type: 
  Country: None (occurrence: None)
  Receive Date: 20120309
  Receipt Date: 20120227
  Transmission Date: 20120608
  Serious: Yes (Other)
  Sender: FDA-Public Use
  Company Number: 2012P1008356

PATIENT
  Age: 58 Year
  Sex: Female
  Weight: 41 kg

DRUGS (1)
  1. FUROSEMIDE [Suspect]
     Indication: OEDEMA
     Dosage: 120 MG;QD

REACTIONS (9)
  - HYPERCALCIURIA [None]
  - BLOOD UREA INCREASED [None]
  - NEPHROCALCINOSIS [None]
  - RENAL IMPAIRMENT [None]
  - HYPOKALAEMIA [None]
  - BLOOD URIC ACID INCREASED [None]
  - RENAL CYST [None]
  - BLOOD PARATHYROID HORMONE INCREASED [None]
  - RENAL INJURY [None]
